FAERS Safety Report 15982473 (Version 1)
Quarter: 2019Q1

REPORT INFORMATION
  Report Type: Spontaneous
  Country: GB (occurrence: GB)
  Receive Date: 20190219
  Receipt Date: 20190219
  Transmission Date: 20190418
  Serious: Yes (Other)
  Sender: FDA-Public Use
  Company Number: GB-PFIZER INC-2019067813

PATIENT
  Age: 57 Year
  Sex: Male
  Weight: 54 kg

DRUGS (11)
  1. LEVETIRACETAM. [Concomitant]
     Active Substance: LEVETIRACETAM
     Dosage: UNK
     Dates: start: 20180909, end: 20190114
  2. FULTIUM D3 [Concomitant]
     Active Substance: CHOLECALCIFEROL
     Dosage: 1 DF, 1X/DAY
     Dates: start: 20180522
  3. ATORVASTATIN [Concomitant]
     Active Substance: ATORVASTATIN
     Dosage: 2 DF, 1X/DAY
     Dates: start: 20180522
  4. AMLODIPINE BESILATE [Suspect]
     Active Substance: AMLODIPINE BESYLATE
     Dosage: 5 MG, UNK
     Dates: start: 20180521
  5. LOSARTAN. [Concomitant]
     Active Substance: LOSARTAN
     Dosage: 1 DF, 1X/DAY
     Dates: start: 20180522
  6. BRIVARACETAM [Concomitant]
     Active Substance: BRIVARACETAM
     Dosage: 1 DF, 1X/DAY, (TO BE TAKEN EACH NIGHT FOR ONE MONTH AND THEN...)
     Dates: start: 20180115
  7. TAPENTADOL [Concomitant]
     Active Substance: TAPENTADOL
     Dosage: 200 MG, DAILY, (TO BE TAKEN EACH NIGHT FOR ONE MONTH AND THEN...)
     Dates: start: 20180522
  8. PYRIDOXINE [Concomitant]
     Active Substance: PYRIDOXINE
     Dosage: 1 DF, 1X/DAY
     Dates: start: 20180629
  9. LEVETIRACETAM. [Concomitant]
     Active Substance: LEVETIRACETAM
     Dosage: 0.5 DF, 1X/DAY
     Dates: start: 20180809, end: 2018
  10. CLOPIDOGREL [Concomitant]
     Active Substance: CLOPIDOGREL BISULFATE
     Dosage: 1 DF, 1X/DAY
     Dates: start: 20180522
  11. TEMAZEPAM. [Concomitant]
     Active Substance: TEMAZEPAM
     Dosage: 1 DF, 1X/DAY, (AT NIGHT)
     Dates: start: 20180522

REACTIONS (5)
  - Drug hypersensitivity [Unknown]
  - Abdominal pain lower [Unknown]
  - Disorientation [Unknown]
  - Dizziness [Unknown]
  - Abdominal distension [Unknown]
